FAERS Safety Report 16702316 (Version 2)
Quarter: 2019Q3

REPORT INFORMATION
  Report Type: Spontaneous
  Country: JP (occurrence: JP)
  Receive Date: 20190814
  Receipt Date: 20190819
  Transmission Date: 20191004
  Serious: Yes (Other)
  Sender: FDA-Public Use
  Company Number: JP-JNJFOC-20190813031

PATIENT

DRUGS (1)
  1. XEPLION [Suspect]
     Active Substance: PALIPERIDONE PALMITATE
     Indication: PRODUCT USED FOR UNKNOWN INDICATION
     Dosage: UNKNOWN?PALIPERIDONE PALMITATE:25MG
     Route: 030

REACTIONS (3)
  - Pericardial effusion [Unknown]
  - Neoplasm malignant [Unknown]
  - Platelet count decreased [Unknown]
